FAERS Safety Report 6257901-1 (Version None)
Quarter: 2009Q3

REPORT INFORMATION
  Report Type: 
  Country: None (occurrence: None)
  Receive Date: 20090707
  Receipt Date: 20090624
  Transmission Date: 20100115
  Serious: Yes (Other)
  Sender: FDA-Public Use
  Company Number: GB-PFIZER INC-2008017043

PATIENT
  Age: 35 Year

DRUGS (3)
  1. CHAMPIX [Suspect]
     Route: 048
     Dates: start: 20070824, end: 20071130
  2. MICRONOR [Concomitant]
     Indication: CONTRACEPTION
     Dosage: 350 MG, 1X/DAY
     Dates: start: 20070824
  3. ALBUTEROL [Concomitant]
     Indication: ASTHMA
     Dosage: 2 DF, 3X/DAY
     Route: 055

REACTIONS (3)
  - ANXIETY [None]
  - DEPRESSION [None]
  - TEARFULNESS [None]
